FAERS Safety Report 21302974 (Version 5)
Quarter: 2023Q1

REPORT INFORMATION
  Report Type: Spontaneous
  Country: JP (occurrence: JP)
  Receive Date: 20220907
  Receipt Date: 20230203
  Transmission Date: 20230417
  Serious: Yes (Death, Life-Threatening, Hospitalization, Other)
  Sender: FDA-Public Use
  Company Number: JP-ONO-2022JP017368AA

PATIENT
  Age: 57 Year
  Sex: Male
  Weight: 69.1 kg

DRUGS (12)
  1. BRAFTOVI [Suspect]
     Active Substance: ENCORAFENIB
     Indication: Malignant melanoma
     Dosage: UNK
     Route: 048
     Dates: start: 20200626, end: 20220204
  2. MEKTOVI [Suspect]
     Active Substance: BINIMETINIB
     Indication: Malignant melanoma
     Dosage: UNK
     Route: 048
     Dates: start: 20200626, end: 20220204
  3. METHYLPREDNISOLONE [Suspect]
     Active Substance: METHYLPREDNISOLONE
     Indication: Hepatic function abnormal
     Dosage: 125 MG
     Route: 065
     Dates: start: 20220413
  4. METHYLPREDNISOLONE [Suspect]
     Active Substance: METHYLPREDNISOLONE
     Indication: Meningitis
     Dosage: 1000 MG
     Route: 065
     Dates: start: 20220414, end: 20220416
  5. OPDIVO [Suspect]
     Active Substance: NIVOLUMAB
     Indication: Malignant melanoma
     Dosage: 80 MG, Q3W
     Route: 041
     Dates: start: 20220303, end: 20220324
  6. YERVOY [Suspect]
     Active Substance: IPILIMUMAB
     Indication: Malignant melanoma
     Dosage: 200 MG, Q3W
     Route: 041
     Dates: start: 20220303, end: 20220324
  7. DECADRON [Suspect]
     Active Substance: DEXAMETHASONE
     Indication: Meningitis
     Dosage: 4 MG
     Route: 048
     Dates: start: 20220331
  8. PREDNISOLONE [Suspect]
     Active Substance: PREDNISOLONE
     Indication: Hepatic function abnormal
     Dosage: 70 MG
     Route: 065
     Dates: start: 20220417
  9. PREDNISOLONE [Suspect]
     Active Substance: PREDNISOLONE
     Indication: Meningitis
  10. ROSUVASTATIN CALCIUM [Concomitant]
     Active Substance: ROSUVASTATIN CALCIUM
     Dosage: 2.5 MG, EVERYDAY
     Route: 048
     Dates: start: 20181211
  11. FEXOFENADINE HYDROCHLORIDE [Concomitant]
     Active Substance: FEXOFENADINE HYDROCHLORIDE
     Indication: Pruritus
     Dosage: 60 MG, Q12H
     Route: 048
     Dates: start: 20220324
  12. MAGNESIUM OXIDE [Concomitant]
     Active Substance: MAGNESIUM OXIDE
     Indication: Constipation
     Dosage: 330 MG, Q8H
     Route: 048
     Dates: start: 20220324

REACTIONS (17)
  - Pancreatitis [Fatal]
  - Multiple organ dysfunction syndrome [Fatal]
  - Renal impairment [Fatal]
  - Hepatic function abnormal [Fatal]
  - Acute respiratory failure [Recovering/Resolving]
  - Circulatory collapse [Recovering/Resolving]
  - Ischaemic hepatitis [Unknown]
  - Arterial rupture [Recovering/Resolving]
  - Prerenal failure [Unknown]
  - Meningitis [Not Recovered/Not Resolved]
  - Febrile neutropenia [Recovered/Resolved]
  - Septic shock [Unknown]
  - Pruritus [Not Recovered/Not Resolved]
  - Constipation [Not Recovered/Not Resolved]
  - Pyrexia [Unknown]
  - Blood creatine phosphokinase increased [Unknown]
  - Asteatosis [Unknown]

NARRATIVE: CASE EVENT DATE: 20220324
